FAERS Safety Report 5538368-5 (Version None)
Quarter: 2007Q4

REPORT INFORMATION
  Report Type: 
  Country: None (occurrence: None)
  Receive Date: 20071205
  Receipt Date: 20071128
  Transmission Date: 20080405
  Serious: Yes (Other)
  Sender: FDA-Public Use
  Company Number: 028-20785-07111575

PATIENT

DRUGS (3)
  1. THALOMID [Suspect]
     Indication: MALIGNANT MELANOMA
     Dosage: ORAL
     Route: 048
  2. TEMOZOLOMIDE [Suspect]
     Indication: MALIGNANT MELANOMA
  3. INTERFERON (INTERFERON) [Suspect]
     Indication: MALIGNANT MELANOMA

REACTIONS (17)
  - ANAEMIA [None]
  - BONE MARROW FAILURE [None]
  - CARDIAC DISORDER [None]
  - CEREBRAL HAEMORRHAGE [None]
  - CONSTIPATION [None]
  - DEEP VEIN THROMBOSIS [None]
  - HERPES ZOSTER [None]
  - LEUKOPENIA [None]
  - LYMPHOPENIA [None]
  - METASTASES TO CENTRAL NERVOUS SYSTEM [None]
  - NAUSEA [None]
  - NERVOUS SYSTEM DISORDER [None]
  - NEUTROPENIA [None]
  - PERIPHERAL SENSORY NEUROPATHY [None]
  - PULMONARY EMBOLISM [None]
  - THROMBOCYTOPENIA [None]
  - THROMBOSIS [None]
